FAERS Safety Report 5505515-0 (Version None)
Quarter: 2007Q4

REPORT INFORMATION
  Report Type: 
  Country: None (occurrence: None)
  Receive Date: 20071102
  Receipt Date: 20071029
  Transmission Date: 20080405
  Serious: Yes (Other)
  Sender: FDA-Public Use
  Company Number: PHEH2007US09436

PATIENT
  Age: 85 Year
  Sex: Female
  Weight: 57.142 kg

DRUGS (5)
  1. TEKTURNA [Suspect]
     Indication: HYPERTENSION
     Dosage: 75 MG, QD
     Route: 048
     Dates: start: 20070410, end: 20070602
  2. TEKTURNA [Suspect]
     Dosage: 150 MG, QD
     Route: 048
     Dates: start: 20070523, end: 20070624
  3. TEKTURNA [Suspect]
     Dosage: 300 MG, QD
     Route: 048
     Dates: start: 20070625
  4. ATACAND [Concomitant]
     Indication: HYPERTENSION
  5. SIASOL [Concomitant]

REACTIONS (4)
  - CEREBROVASCULAR ACCIDENT [None]
  - OEDEMA PERIPHERAL [None]
  - PHLEBITIS [None]
  - SWELLING [None]
